FAERS Safety Report 15445356 (Version 1)
Quarter: 2018Q3

REPORT INFORMATION
  Report Type: Spontaneous
  Country: US (occurrence: US)
  Receive Date: 20180925
  Receipt Date: 20180925
  Transmission Date: 20181010
  Serious: Yes (Hospitalization)
  Sender: FDA-Public Use
  Company Number: None

PATIENT
  Age: 65 Year
  Sex: Male
  Weight: 96.6 kg

DRUGS (1)
  1. MEMANTINE HYDROCHLORIDE. [Suspect]
     Active Substance: MEMANTINE HYDROCHLORIDE
     Dates: start: 20170112

REACTIONS (10)
  - Gait disturbance [None]
  - Viral infection [None]
  - Asthenia [None]
  - Dysarthria [None]
  - Brain neoplasm [None]
  - Productive cough [None]
  - Sputum discoloured [None]
  - Muscular weakness [None]
  - Malignant neoplasm progression [None]
  - Brain oedema [None]

NARRATIVE: CASE EVENT DATE: 20170113
